FAERS Safety Report 4970799-4 (Version None)
Quarter: 2006Q1

REPORT INFORMATION
  Report Type: 
  Country: None (occurrence: None)
  Receive Date: 20060209
  Receipt Date: 20050810
  Transmission Date: 20060701
  Serious: Yes (Other)
  Sender: FDA-Public Use
  Company Number: US-JNJFOC-20050802739

PATIENT
  Age: 40 Year
  Sex: Male

DRUGS (1)
  1. OFLOXACIN [Suspect]
     Indication: BACTERIAL INFECTION
     Dosage: 300 MG
     Dates: start: 20050111

REACTIONS (1)
  - GRAND MAL CONVULSION [None]
